FAERS Safety Report 16438492 (Version 2)
Quarter: 2019Q4

REPORT INFORMATION
  Report Type: Spontaneous
  Country: BR (occurrence: BR)
  Receive Date: 20190617
  Receipt Date: 20191105
  Transmission Date: 20200122
  Serious: Yes (Hospitalization, Other)
  Sender: FDA-Public Use
  Company Number: BR-ASTRAZENECA-2019SE86670

PATIENT
  Sex: Female

DRUGS (2)
  1. ANASTROZOLE. [Concomitant]
     Active Substance: ANASTROZOLE
  2. SYMBICORT [Suspect]
     Active Substance: BUDESONIDE\FORMOTEROL FUMARATE DIHYDRATE
     Indication: ASTHMATIC CRISIS
     Dosage: 160/4.5 MCG, AS REQUIRED AS REQUIRED
     Route: 055
     Dates: start: 2015

REACTIONS (3)
  - Product administration error [Not Recovered/Not Resolved]
  - Breast cancer [Unknown]
  - Off label use [Not Recovered/Not Resolved]
